FAERS Safety Report 5732447-5 (Version None)
Quarter: 2008Q2

REPORT INFORMATION
  Report Type: 
  Country: None (occurrence: None)
  Receive Date: 20080508
  Receipt Date: 20080429
  Transmission Date: 20081010
  Serious: Yes (Hospitalization, Disabling)
  Sender: FDA-Public Use
  Company Number: SE-AMGEN-US277140

PATIENT
  Sex: Male

DRUGS (4)
  1. ENBREL [Suspect]
     Indication: PSORIATIC ARTHROPATHY
     Route: 065
     Dates: start: 20070917, end: 20071224
  2. ENBREL [Suspect]
     Indication: PSORIASIS
  3. METHOTREXATE [Suspect]
     Indication: PSORIASIS
     Dosage: ABOUT 10 MG/WK
     Route: 065
     Dates: start: 19940101
  4. METHOTREXATE [Suspect]
     Dosage: 5 MG/WEEK
     Dates: start: 20070501

REACTIONS (4)
  - CONDITION AGGRAVATED [None]
  - DIABETIC FOOT [None]
  - LEG AMPUTATION [None]
  - SEPSIS [None]
